FAERS Safety Report 5447850-0 (Version None)
Quarter: 2007Q3

REPORT INFORMATION
  Report Type: 
  Country: None (occurrence: None)
  Receive Date: 20070910
  Receipt Date: 20070829
  Transmission Date: 20080115
  Serious: Yes (Hospitalization)
  Sender: FDA-Public Use
  Company Number: US-KINGPHARMUSA00001-K200701111

PATIENT

DRUGS (4)
  1. ALTACE [Suspect]
     Indication: HYPERTENSION
     Dosage: 5 MG, QD
     Route: 048
     Dates: end: 20070520
  2. KARVEZIDE [Concomitant]
     Indication: HYPERTENSION
     Dosage: 300/12.5 MG, QD
     Route: 048
     Dates: start: 20050101
  3. METOPROLOL SUCCINATE [Concomitant]
     Indication: HYPERTENSION
     Route: 048
     Dates: start: 20050101
  4. METFORMIN HCL [Concomitant]
     Indication: DIABETES MELLITUS
     Route: 048
     Dates: start: 20050101

REACTIONS (5)
  - AGEUSIA [None]
  - AGNOSIA [None]
  - CEREBROVASCULAR ACCIDENT [None]
  - PAROSMIA [None]
  - SPEECH DISORDER [None]
